FAERS Safety Report 8584851-8 (Version None)
Quarter: 2012Q3

REPORT INFORMATION
  Report Type: 
  Country: None (occurrence: None)
  Receive Date: 20120810
  Receipt Date: 20120801
  Transmission Date: 20120928
  Serious: Yes (Other)
  Sender: FDA-Public Use
  Company Number: MX-JNJFOC-20120705574

PATIENT
  Age: 45 Year
  Sex: Male

DRUGS (4)
  1. HEPARIN [Concomitant]
     Dosage: 10 TO 12 THOUSAND UNITS
     Route: 065
  2. PRASUGREL [Concomitant]
     Route: 065
  3. ASPIRIN [Concomitant]
     Route: 065
  4. ABCIXIMAB [Suspect]
     Indication: PERCUTANEOUS CORONARY INTERVENTION
     Dosage: DURATION - 4 HOURS
     Route: 042

REACTIONS (2)
  - HAEMORRHAGE [None]
  - SCROTAL HAEMATOMA [None]
